FAERS Safety Report 15752739 (Version 1)
Quarter: 2018Q4

REPORT INFORMATION
  Report Type: Report from Study
  Country: US (occurrence: US)
  Receive Date: 20181221
  Receipt Date: 20181221
  Transmission Date: 20190205
  Serious: Yes (Hospitalization, Other)
  Sender: FDA-Public Use
  Company Number: US-APOPHARMA-2018AP027543

PATIENT
  Sex: Female
  Weight: 52 kg

DRUGS (1)
  1. FERRIPROX [Suspect]
     Active Substance: DEFERIPRONE
     Indication: CEREBROVASCULAR DISORDER
     Dosage: 19 MG/KG, BID
     Route: 048
     Dates: start: 20171222

REACTIONS (1)
  - Agranulocytosis [Recovered/Resolved]
